FAERS Safety Report 5423983-X (Version None)
Quarter: 2007Q3

REPORT INFORMATION
  Report Type: 
  Country: None (occurrence: None)
  Receive Date: 20070727
  Receipt Date: 20061005
  Transmission Date: 20080115
  Serious: Yes (Death)
  Sender: FDA-Public Use
  Company Number: THYM-11064

PATIENT
  Age: 50 Year
  Sex: Female
  Weight: 70.7611 kg

DRUGS (2)
  1. THYMOGLOBULIN [Suspect]
     Indication: LIVER TRANSPLANT
     Dosage: 100 MG QD IV
     Route: 042
     Dates: start: 20060903, end: 20060904
  2. THYMOGLOBULIN [Suspect]
     Indication: LIVER TRANSPLANT
     Dosage: 50 MG QD IV
     Route: 042
     Dates: start: 20060905, end: 20060908

REACTIONS (2)
  - EXSANGUINATION [None]
  - HEPATIC RUPTURE [None]
